FAERS Safety Report 18414379 (Version 1)
Quarter: 2020Q4

REPORT INFORMATION
  Report Type: Spontaneous
  Country: US (occurrence: US)
  Receive Date: 20201022
  Receipt Date: 20201022
  Transmission Date: 20210114
  Serious: Yes (Other)
  Sender: FDA-Public Use
  Company Number: US-GLAXOSMITHKLINE-US2020AMR210013

PATIENT
  Sex: Female

DRUGS (2)
  1. ZEJULA [Suspect]
     Active Substance: NIRAPARIB
     Indication: OVARIAN CANCER
     Dosage: UNK
     Route: 048
     Dates: start: 20201007
  2. ZEJULA [Suspect]
     Active Substance: NIRAPARIB
     Dosage: 100 MG, QD
     Route: 048

REACTIONS (11)
  - Mucosal inflammation [Unknown]
  - Decreased appetite [Unknown]
  - Choking [Unknown]
  - Muscular weakness [Unknown]
  - Asthenia [Unknown]
  - Productive cough [Unknown]
  - Fall [Unknown]
  - Dysphagia [Unknown]
  - Cough [Unknown]
  - Gait inability [Unknown]
  - Weight decreased [Unknown]
